FAERS Safety Report 6611119-9 (Version None)
Quarter: 2010Q1

REPORT INFORMATION
  Report Type: 
  Country: None (occurrence: None)
  Receive Date: 20100303
  Receipt Date: 20100223
  Transmission Date: 20100710
  Serious: Yes (Hospitalization)
  Sender: FDA-Public Use
  Company Number: US-BIOGENIDEC-2009BI030506

PATIENT
  Age: 49 Year
  Sex: Male

DRUGS (4)
  1. TYSABRI [Suspect]
     Indication: MULTIPLE SCLEROSIS
     Route: 042
     Dates: start: 20090210, end: 20090415
  2. BACLOFEN [Concomitant]
     Indication: MUSCLE SPASMS
     Dates: start: 20090101
  3. PROTONIX [Concomitant]
  4. ASPIRIN [Concomitant]

REACTIONS (6)
  - ASTHENIA [None]
  - COGNITIVE DISORDER [None]
  - DYSPHAGIA [None]
  - PYREXIA [None]
  - STATUS EPILEPTICUS [None]
  - URINARY TRACT INFECTION [None]
